FAERS Safety Report 6172684-1 (Version None)
Quarter: 2009Q2

REPORT INFORMATION
  Report Type: 
  Country: None (occurrence: None)
  Receive Date: 20090430
  Receipt Date: 20090429
  Transmission Date: 20091009
  Serious: Yes (Other)
  Sender: FDA-Public Use
  Company Number: AU-JNJFOC-20090302802

PATIENT
  Age: 5 Decade
  Sex: Female

DRUGS (2)
  1. CONCERTA [Suspect]
     Indication: SUICIDE ATTEMPT
     Route: 065
  2. ACETAMINOPHEN [Suspect]
     Indication: SUICIDE ATTEMPT
     Route: 065

REACTIONS (1)
  - OVERDOSE [None]
